FAERS Safety Report 20566041 (Version 2)
Quarter: 2023Q1

REPORT INFORMATION
  Report Type: Report from Study
  Country: CA (occurrence: CA)
  Receive Date: 20220308
  Receipt Date: 20230201
  Transmission Date: 20230417
  Serious: Yes (Life-Threatening, Hospitalization)
  Sender: FDA-Public Use
  Company Number: CA-NOVARTISPH-NVSC2022CA053459

PATIENT
  Age: 30 Year
  Sex: Male

DRUGS (3)
  1. JADENU [Suspect]
     Active Substance: DEFERASIROX
     Indication: Thalassaemia
     Dosage: UNK
     Route: 065
     Dates: start: 2008
  2. JADENU [Suspect]
     Active Substance: DEFERASIROX
     Indication: Iron overload
     Dosage: 1080 MG, BID (THREE X 360MG TABLETS)
     Route: 048
     Dates: start: 20220412, end: 20220728
  3. JADENU [Suspect]
     Active Substance: DEFERASIROX
     Dosage: 1080 MG, BID (THREE X 360MG TABLETS)
     Route: 048
     Dates: start: 20220412, end: 20220728

REACTIONS (6)
  - Myocardial infarction [Unknown]
  - Full blood count decreased [Unknown]
  - Abdominal pain upper [Unknown]
  - Hepatic enzyme increased [Unknown]
  - Splenomegaly [Unknown]
  - Diarrhoea [Unknown]
